FAERS Safety Report 15589003 (Version 1)
Quarter: 2018Q4

REPORT INFORMATION
  Report Type: Spontaneous
  Country: US (occurrence: US)
  Receive Date: 20181106
  Receipt Date: 20181106
  Transmission Date: 20190205
  Serious: No
  Sender: FDA-Public Use
  Company Number: US-JNJFOC-20181034849

PATIENT
  Age: 52 Year
  Sex: Female
  Weight: 79.38 kg

DRUGS (3)
  1. PRILOSEC [Concomitant]
     Active Substance: OMEPRAZOLE MAGNESIUM
     Route: 065
  2. STELARA [Suspect]
     Active Substance: USTEKINUMAB
     Indication: PSORIASIS
     Route: 058
  3. HYDROXYZINE [Concomitant]
     Active Substance: HYDROXYZINE HYDROCHLORIDE
     Indication: PRURITUS
     Route: 066

REACTIONS (2)
  - Inappropriate schedule of product administration [Unknown]
  - Product dose omission [Unknown]

NARRATIVE: CASE EVENT DATE: 201809
